FAERS Safety Report 4319032-7 (Version None)
Quarter: 2004Q1

REPORT INFORMATION
  Report Type: 
  Country: None (occurrence: None)
  Receive Date: 20040316
  Receipt Date: 20040304
  Transmission Date: 20041129
  Serious: Yes (Hospitalization)
  Sender: FDA-Public Use
  Company Number: 04P-087-0252828-00

PATIENT
  Sex: Male

DRUGS (7)
  1. NORVIR [Suspect]
     Indication: HIV INFECTION
     Dosage: 200 MG, 1 IN 1 D, PER ORAL
     Route: 048
     Dates: start: 20020905
  2. NELFINAVIR [Suspect]
     Indication: HIV INFECTION
     Dosage: 2500 MG, 1 IN 1 D, PER ORAL
     Route: 048
     Dates: start: 20020401, end: 20020904
  3. AMPRENAVIR [Suspect]
     Indication: HIV INFECTION
     Dosage: 2400 MG, 1 IN 1 D, PER ORAL
     Route: 048
     Dates: start: 20020905
  4. EFAVIRENZ [Suspect]
     Indication: HIV INFECTION
     Dosage: 600 MG, 1 IN 1 D, PER ORAL
     Route: 048
     Dates: start: 20020905
  5. LAMIVUDINE [Concomitant]
  6. STAVUDINE [Concomitant]
  7. ABACAVIR SULFATE [Concomitant]

REACTIONS (6)
  - BLOOD TRIGLYCERIDES INCREASED [None]
  - METASTASES TO ADRENALS [None]
  - METASTASES TO CENTRAL NERVOUS SYSTEM [None]
  - METASTASES TO LIVER [None]
  - METASTASES TO SKIN [None]
  - SMALL CELL CARCINOMA [None]
